FAERS Safety Report 9225573 (Version 1)
Quarter: 2013Q2

REPORT INFORMATION
  Report Type: Spontaneous
  Country: US (occurrence: None)
  Receive Date: 20130410
  Receipt Date: 20130410
  Transmission Date: 20140414
  Serious: Yes (Disabling)
  Sender: FDA-Public Use
  Company Number: None

PATIENT
  Age: 55 Year
  Sex: Male
  Weight: 117.94 kg

DRUGS (1)
  1. HUMIRA [Suspect]
     Indication: CROHN^S DISEASE
     Dosage: 1 AUTOPAN WEEKLY SQ
     Route: 058
     Dates: start: 20130408, end: 20130408

REACTIONS (12)
  - Diarrhoea [None]
  - Gastrointestinal pain [None]
  - Nausea [None]
  - Malaise [None]
  - Depressed level of consciousness [None]
  - Palpitations [None]
  - Asthenia [None]
  - Tachycardia [None]
  - Headache [None]
  - Vomiting [None]
  - Eye irritation [None]
  - Product colour issue [None]
